FAERS Safety Report 11923840 (Version 2)
Quarter: 2016Q1

REPORT INFORMATION
  Report Type: Spontaneous
  Country: US (occurrence: US)
  Receive Date: 20160118
  Receipt Date: 20160212
  Transmission Date: 20160526
  Serious: Yes (Hospitalization)
  Sender: FDA-Public Use
  Company Number: US-AUROBINDO-AUR-APL-2016-00138

PATIENT
  Age: 50 Year
  Sex: Male

DRUGS (7)
  1. RITONAVIR. [Interacting]
     Active Substance: RITONAVIR
     Indication: PRODUCT USED FOR UNKNOWN INDICATION
     Route: 065
  2. EMTRICITABINE [Concomitant]
     Active Substance: EMTRICITABINE
     Indication: PRODUCT USED FOR UNKNOWN INDICATION
     Route: 065
  3. RISPERIDONE 0.5MG [Interacting]
     Active Substance: RISPERIDONE
     Dosage: 3 MG, TWO TIMES A DAY
     Route: 065
  4. BACLOFEN. [Concomitant]
     Active Substance: BACLOFEN
     Indication: PRODUCT USED FOR UNKNOWN INDICATION
     Route: 065
  5. TENOVIRAL [Concomitant]
     Indication: PRODUCT USED FOR UNKNOWN INDICATION
     Route: 065
  6. DARUNAVIR [Concomitant]
     Active Substance: DARUNAVIR
     Indication: PRODUCT USED FOR UNKNOWN INDICATION
     Route: 065
  7. RISPERIDONE 0.5MG [Suspect]
     Active Substance: RISPERIDONE
     Indication: PARANOIA
     Dosage: 0.5 MG, TWO TIMES A DAY
     Route: 065

REACTIONS (3)
  - Angioedema [Recovered/Resolved]
  - Swelling [Recovered/Resolved]
  - Drug interaction [Unknown]
